FAERS Safety Report 7067620-X (Version None)
Quarter: 2010Q4

REPORT INFORMATION
  Report Type: 
  Country: None (occurrence: None)
  Receive Date: 20101010
  Receipt Date: 20101008
  Transmission Date: 20110411
  Serious: Yes (Other)
  Sender: FDA-Public Use
  Company Number: US-1183693

PATIENT
  Age: 3 Year
  Sex: Female

DRUGS (1)
  1. VIGAMOX [Suspect]
     Indication: CONJUNCTIVITIS BACTERIAL
     Dosage: (OPHTHALMIC)
     Route: 047

REACTIONS (2)
  - EYE HAEMORRHAGE [None]
  - HYPERSENSITIVITY [None]
